FAERS Safety Report 5926030-6 (Version None)
Quarter: 2008Q3

REPORT INFORMATION
  Report Type: 
  Country: None (occurrence: None)
  Receive Date: 20080924
  Receipt Date: 20080722
  Transmission Date: 20090109
  Serious: No
  Sender: FDA-Public Use
  Company Number: US-WYE-H05194808

PATIENT

DRUGS (1)
  1. TORISEL [Suspect]
     Indication: RENAL CELL CARCINOMA
     Dosage: 25 MG/WEEK FOR 3-5 MONTHS, INTRAVENOUS
     Route: 042

REACTIONS (1)
  - SKIN DISCOLOURATION [None]
